FAERS Safety Report 24749761 (Version 2)
Quarter: 2025Q1

REPORT INFORMATION
  Report Type: Spontaneous
  Country: ES (occurrence: ES)
  Receive Date: 20241218
  Receipt Date: 20250114
  Transmission Date: 20250409
  Serious: Yes (Hospitalization)
  Sender: ELI LILLY AND COMPANY
  Company Number: ES-ELI_LILLY_AND_COMPANY-ES202412006526

PATIENT
  Age: 80 Year
  Sex: Female
  Weight: 59 kg

DRUGS (8)
  1. JAYPIRCA [Suspect]
     Active Substance: PIRTOBRUTINIB
     Indication: Mantle cell lymphoma
     Dosage: 200 MG, DAILY (EVERY 24 HR)
     Route: 048
     Dates: start: 20241007, end: 20241209
  2. ALLOPURINOL [Suspect]
     Active Substance: ALLOPURINOL
     Indication: Hyperuricaemia
     Route: 065
     Dates: start: 20240708, end: 20241209
  3. LORAZEPAM [Concomitant]
     Active Substance: LORAZEPAM
     Indication: Insomnia
     Dates: start: 20240304
  4. OMEPRAZOLE [Concomitant]
     Active Substance: OMEPRAZOLE
     Indication: Gastritis
     Dates: start: 20240304
  5. LISINOPRIL [Concomitant]
     Active Substance: LISINOPRIL
     Indication: Hypertension
     Dates: start: 20240304
  6. TRAMADOL [Concomitant]
     Active Substance: TRAMADOL
     Indication: Pain
     Dates: start: 20240304
  7. ACETAMINOPHEN [Concomitant]
     Active Substance: ACETAMINOPHEN
     Indication: Pain
     Dates: start: 20240304
  8. BETAHISTINE [Concomitant]
     Active Substance: BETAHISTINE
     Indication: Vertigo
     Dates: start: 20240304

REACTIONS (7)
  - Hyperbilirubinaemia [Recovering/Resolving]
  - Cholestasis [Recovering/Resolving]
  - Blood creatinine increased [Recovered/Resolved]
  - White blood cell count increased [Recovered/Resolved]
  - Diverticulum intestinal [Unknown]
  - Platelet count decreased [Unknown]
  - Haemoglobin decreased [Unknown]

NARRATIVE: CASE EVENT DATE: 20241007
